FAERS Safety Report 8464668-5 (Version None)
Quarter: 2012Q2

REPORT INFORMATION
  Report Type: 
  Country: None (occurrence: None)
  Receive Date: 20120626
  Receipt Date: 20120613
  Transmission Date: 20120825
  Serious: Yes (Hospitalization)
  Sender: FDA-Public Use
  Company Number: CA-JNJFOC-20120607526

PATIENT
  Sex: Female
  Weight: 100 kg

DRUGS (9)
  1. REMICADE [Suspect]
     Indication: PSORIASIS
     Route: 042
  2. SPIRIVA [Concomitant]
     Route: 065
  3. REMICADE [Suspect]
     Route: 042
     Dates: start: 20120613, end: 20120613
  4. TRIAMTERENE [Concomitant]
     Route: 065
  5. CITALOPRAM HYDROBROMIDE [Concomitant]
     Route: 065
  6. NAPROXEN [Concomitant]
     Dosage: AS NEEDED
     Route: 065
  7. VENTOLIN [Concomitant]
     Dosage: AS NECESSARY
     Route: 065
  8. REMICADE [Suspect]
     Route: 042
     Dates: start: 20110713
  9. ESTRACE [Concomitant]
     Route: 065

REACTIONS (7)
  - ARTHRALGIA [None]
  - NAUSEA [None]
  - OXYGEN SATURATION DECREASED [None]
  - CHEST PAIN [None]
  - INFUSION RELATED REACTION [None]
  - CHILLS [None]
  - VOMITING [None]
